FAERS Safety Report 8614867-4 (Version None)
Quarter: 2012Q3

REPORT INFORMATION
  Report Type: 
  Country: None (occurrence: None)
  Receive Date: 20120823
  Receipt Date: 20120604
  Transmission Date: 20120928
  Serious: No
  Sender: FDA-Public Use
  Company Number: US-BRISTOL-MYERS SQUIBB COMPANY-16659633

PATIENT
  Age: 74 Year
  Sex: Female
  Weight: 68 kg

DRUGS (2)
  1. KOMBIGLYZE XR [Suspect]
     Indication: DIABETES MELLITUS
     Dosage: 1DF:2.5/1000MG
  2. TARKA [Concomitant]

REACTIONS (1)
  - DIARRHOEA [None]
